FAERS Safety Report 5789786-1 (Version None)
Quarter: 2008Q2

REPORT INFORMATION
  Report Type: 
  Country: None (occurrence: None)
  Receive Date: 20080626
  Receipt Date: 20080228
  Transmission Date: 20081010
  Serious: No
  Sender: FDA-Public Use
  Company Number: A0709300A

PATIENT
  Age: 48 Year

DRUGS (2)
  1. ALLI [Suspect]
  2. PSYLLIUM HUSK [Concomitant]

REACTIONS (11)
  - ABDOMINAL DISTENSION [None]
  - ABNORMAL FAECES [None]
  - ACNE [None]
  - BODY HEIGHT DECREASED [None]
  - CONSTIPATION [None]
  - DISCOMFORT [None]
  - FEAR [None]
  - FLATULENCE [None]
  - GASTROINTESTINAL SOUNDS ABNORMAL [None]
  - INSOMNIA [None]
  - POLLAKIURIA [None]
